FAERS Safety Report 19967801 (Version 1)
Quarter: 2021Q4

REPORT INFORMATION
  Report Type: Report from Study
  Country: US (occurrence: US)
  Receive Date: 20211019
  Receipt Date: 20211019
  Transmission Date: 20220303
  Serious: No
  Sender: FDA-Public Use
  Company Number: US-NOVARTISTESTPH-NVSC2021US236402

PATIENT
  Sex: Female

DRUGS (1)
  1. MAYZENT [Suspect]
     Active Substance: SIPONIMOD
     Indication: Relapsing multiple sclerosis
     Route: 065
     Dates: start: 20201201

REACTIONS (4)
  - Muscle spasms [Unknown]
  - Fall [Unknown]
  - Movement disorder [Unknown]
  - Tendon rupture [Unknown]
